FAERS Safety Report 5872390-4 (Version None)
Quarter: 2008Q3

REPORT INFORMATION
  Report Type: 
  Country: None (occurrence: None)
  Receive Date: 20080902
  Receipt Date: 20080819
  Transmission Date: 20090109
  Serious: Yes (Life-Threatening, Hospitalization, Other)
  Sender: FDA-Public Use
  Company Number: 2008S1015480

PATIENT
  Age: 62 Year
  Sex: Female

DRUGS (4)
  1. METFORMIN HCL [Suspect]
     Indication: DIABETES MELLITUS
     Dosage: 1 GM, TWICE A DAY, ORAL
     Route: 048
     Dates: start: 20080622
  2. ENALAPRIL MALEATE [Concomitant]
  3. LANSOPRAZOLE [Concomitant]
  4. LANTUS [Concomitant]

REACTIONS (2)
  - HYPOGLYCAEMIA [None]
  - METABOLIC ACIDOSIS [None]
